FAERS Safety Report 25439497 (Version 1)
Quarter: 2025Q2

REPORT INFORMATION
  Report Type: Spontaneous
  Country: US (occurrence: None)
  Receive Date: 20250613
  Receipt Date: 20250613
  Transmission Date: 20250717
  Serious: Yes (Death)
  Sender: FDA-CTU
  Company Number: None

PATIENT
  Age: 88 Year
  Sex: Female

DRUGS (11)
  1. DEFERASIROX [Suspect]
     Active Substance: DEFERASIROX
     Indication: Iron overload
     Dosage: FREQUENCY : TWICE A DAY;?
     Route: 048
     Dates: start: 20221102
  2. ZARXIO [Concomitant]
     Active Substance: FILGRASTIM-SNDZ
  3. eliqquis [Concomitant]
  4. ASPIRIN [Concomitant]
     Active Substance: ASPIRIN
  5. MARINOL [Concomitant]
     Active Substance: DRONABINOL
  6. MEGESTROL [Concomitant]
     Active Substance: MEGESTROL
  7. SUCRALFATE [Concomitant]
     Active Substance: SUCRALFATE
  8. DICYCLOMINE [Concomitant]
     Active Substance: DICYCLOMINE HYDROCHLORIDE
  9. RETACRIT [Concomitant]
     Active Substance: EPOETIN ALFA-EPBX
  10. ALLOPURINOL [Concomitant]
     Active Substance: ALLOPURINOL
  11. LOVASTATIN [Concomitant]
     Active Substance: LOVASTATIN

REACTIONS (1)
  - Death [None]

NARRATIVE: CASE EVENT DATE: 20250520
